FAERS Safety Report 16227990 (Version 1)
Quarter: 2019Q2

REPORT INFORMATION
  Report Type: Spontaneous
  Country: FR (occurrence: FR)
  Receive Date: 20190423
  Receipt Date: 20190423
  Transmission Date: 20190711
  Serious: Yes (Hospitalization, Other)
  Sender: FDA-Public Use
  Company Number: FR-TEVA-2019-FR-1041207

PATIENT
  Age: 79 Year
  Sex: Female

DRUGS (9)
  1. AMLODIPINE [Suspect]
     Active Substance: AMLODIPINE BESYLATE
     Indication: HYPERTENSION
     Route: 065
     Dates: start: 201901
  2. AMLODIPINE [Suspect]
     Active Substance: AMLODIPINE BESYLATE
     Indication: CEREBROVASCULAR ACCIDENT PROPHYLAXIS
  3. PERINDOPRIL TEVA SANTE 10 MG [Suspect]
     Active Substance: PERINDOPRIL
     Indication: CEREBROVASCULAR ACCIDENT PROPHYLAXIS
  4. BISOPROLOL TEVA SANTE 1.25 MG [Suspect]
     Active Substance: BISOPROLOL
     Indication: CEREBROVASCULAR ACCIDENT PROPHYLAXIS
  5. ATORVASTATINE TEVA SANTE 10 MG [Suspect]
     Active Substance: ATORVASTATIN
     Indication: HYPERTENSION
     Route: 065
     Dates: start: 201901
  6. BISOPROLOL TEVA SANTE 1.25 MG [Suspect]
     Active Substance: BISOPROLOL
     Indication: HYPERTENSION
     Route: 065
     Dates: start: 201901
  7. KARDEGIC [Concomitant]
     Active Substance: ASPIRIN DL-LYSINE
     Dosage: AT MIDDAY
  8. PERINDOPRIL TEVA SANTE 10 MG [Suspect]
     Active Substance: PERINDOPRIL
     Indication: HYPERTENSION
     Route: 065
     Dates: start: 201901
  9. ATORVASTATINE TEVA SANTE 10 MG [Suspect]
     Active Substance: ATORVASTATIN
     Indication: CEREBROVASCULAR ACCIDENT PROPHYLAXIS

REACTIONS (10)
  - Constipation [Unknown]
  - Vertigo [Unknown]
  - Blood urine present [Recovered/Resolved]
  - Balance disorder [Unknown]
  - Renal pain [Unknown]
  - Dysuria [Unknown]
  - Hypoaesthesia [Unknown]
  - Headache [Unknown]
  - Tremor [Unknown]
  - Product prescribing error [Unknown]

NARRATIVE: CASE EVENT DATE: 201904
